FAERS Safety Report 8647324 (Version 2)
Quarter: 2015Q4

REPORT INFORMATION
  Report Type: Spontaneous
  Country: US (occurrence: US)
  Receive Date: 20120703
  Receipt Date: 20151026
  Transmission Date: 20160305
  Serious: No
  Sender: FDA-Public Use
  Company Number: US-TEVA-341380USA

PATIENT
  Age: 16 Year
  Sex: Female
  Weight: 65.83 kg

DRUGS (3)
  1. NUVIGIL [Suspect]
     Active Substance: ARMODAFINIL
     Indication: FATIGUE
     Dosage: 150 MILLIGRAM DAILY; QAM
     Route: 048
     Dates: start: 201101, end: 20120319
  2. ESCITALOPRAM OXALATE. [Concomitant]
     Active Substance: ESCITALOPRAM OXALATE
     Indication: ANXIETY
     Dosage: QPM
     Route: 048
  3. NUVIGIL [Suspect]
     Active Substance: ARMODAFINIL
     Indication: SLEEP APNOEA SYNDROME
     Dosage: 250 MILLIGRAM DAILY; QAM
     Route: 048
     Dates: start: 20120312, end: 20120319

REACTIONS (8)
  - Nervousness [Recovered/Resolved]
  - Aggression [Recovered/Resolved]
  - Tension [Recovered/Resolved]
  - Mood altered [Recovered/Resolved]
  - Agitation [Recovered/Resolved]
  - Off label use [Recovered/Resolved]
  - Irritability [Recovered/Resolved]
  - Headache [Recovered/Resolved]

NARRATIVE: CASE EVENT DATE: 201101
